FAERS Safety Report 9179565 (Version 1)
Quarter: 2013Q1

REPORT INFORMATION
  Report Type: Spontaneous
  Country: DE (occurrence: SE)
  Receive Date: 20130321
  Receipt Date: 20130321
  Transmission Date: 20140127
  Serious: Yes (Hospitalization)
  Sender: FDA-Public Use
  Company Number: SE-FRI-1000043611

PATIENT
  Age: 73 Year
  Sex: Male

DRUGS (2)
  1. ROFLUMILAST [Suspect]
     Dates: end: 20121219
  2. LAKTULOS [Concomitant]

REACTIONS (3)
  - Dyspnoea [Unknown]
  - Eructation [Unknown]
  - Flatulence [Unknown]
